FAERS Safety Report 5453493-5 (Version None)
Quarter: 2007Q3

REPORT INFORMATION
  Report Type: 
  Country: None (occurrence: None)
  Receive Date: 20070913
  Receipt Date: 20070824
  Transmission Date: 20080115
  Serious: Yes (Other)
  Sender: FDA-Public Use
  Company Number: 2007US002096

PATIENT
  Age: 48 Year
  Sex: Female

DRUGS (2)
  1. PROGRAF [Suspect]
     Indication: RENAL TRANSPLANT
  2. MYCOPHENOLATE MOFETIL [Concomitant]

REACTIONS (3)
  - HAIR DISORDER [None]
  - INFECTION IN AN IMMUNOCOMPROMISED HOST [None]
  - VIRAL INFECTION [None]
